FAERS Safety Report 9671228 (Version 1)
Quarter: 2013Q4

REPORT INFORMATION
  Report Type: Spontaneous
  Country: US (occurrence: US)
  Receive Date: 20131106
  Receipt Date: 20131106
  Transmission Date: 20140711
  Serious: Yes (Life-Threatening)
  Sender: FDA-Public Use
  Company Number: US-BAYER-2013-134491

PATIENT
  Sex: Female

DRUGS (2)
  1. BAYER GENUINE ASPIRIN ORIGINAL STRENGTH [Suspect]
     Route: 048
  2. FLINTSTONES COMPLETE [Concomitant]

REACTIONS (3)
  - Pharyngeal oedema [Recovered/Resolved]
  - Urticaria [Recovered/Resolved]
  - Off label use [None]
